FAERS Safety Report 4824535-2 (Version None)
Quarter: 2005Q4

REPORT INFORMATION
  Report Type: 
  Country: None (occurrence: None)
  Receive Date: 20051108
  Receipt Date: 20051011
  Transmission Date: 20060501
  Serious: Yes (Other)
  Sender: FDA-Public Use
  Company Number: 2005-0008888

PATIENT
  Age: 41 Year
  Sex: Female

DRUGS (5)
  1. VIREAD [Suspect]
     Dosage: 300 MG, 1 IN 1 D, ORAL
     Route: 048
     Dates: start: 20031006
  2. EPIVIR (LAMUVIDINE) [Suspect]
     Dosage: 300 MG, 1 IN 1 D, ORAL
     Route: 048
     Dates: start: 20040708
  3. IMOVANE (ZOPICLONE) [Concomitant]
  4. REYATAZ [Suspect]
     Dosage: 400 MG, 1 IN 1 D, ORAL
     Route: 048
     Dates: start: 20031006
  5. NORVIR [Suspect]
     Dosage: 100 MG, 1 IN 1 D
     Dates: start: 20031006

REACTIONS (3)
  - ABORTION [None]
  - DRUG EXPOSURE DURING PREGNANCY [None]
  - PREGNANCY [None]
